FAERS Safety Report 13394271 (Version 1)
Quarter: 2017Q2

REPORT INFORMATION
  Report Type: Spontaneous
  Country: TR (occurrence: TR)
  Receive Date: 20170402
  Receipt Date: 20170402
  Transmission Date: 20170830
  Serious: Yes (Other)
  Sender: FDA-Public Use
  Company Number: TR-MYLANLABS-2017M1020118

PATIENT

DRUGS (2)
  1. CISPLATIN. [Suspect]
     Active Substance: CISPLATIN
     Indication: OSTEOSARCOMA
     Dosage: 120 MG/M2/DAY FOR TWO CONSECUTIVE DAYS, INSTEAD OF ONE DAY
  2. DOXORUBICIN [Concomitant]
     Active Substance: DOXORUBICIN
     Indication: OSTEOSARCOMA
     Route: 065

REACTIONS (7)
  - Bone marrow failure [Recovered/Resolved]
  - Vomiting [Recovered/Resolved]
  - Acute kidney injury [Recovered/Resolved]
  - Nausea [Recovered/Resolved]
  - Drug prescribing error [Recovered/Resolved]
  - Accidental overdose [Recovered/Resolved]
  - Hepatic enzyme increased [Recovered/Resolved]
